FAERS Safety Report 7635246-2 (Version None)
Quarter: 2011Q3

REPORT INFORMATION
  Report Type: 
  Country: None (occurrence: None)
  Receive Date: 20110726
  Receipt Date: 20110721
  Transmission Date: 20111222
  Serious: Yes (Other)
  Sender: FDA-Public Use
  Company Number: CN-ABBOTT-11P-035-0723353-00

PATIENT
  Age: 21 Year
  Sex: Male

DRUGS (5)
  1. DEPAKENE [Suspect]
     Route: 048
     Dates: start: 20110301, end: 20110401
  2. CARBAMAZEPINE [Concomitant]
     Indication: PRODUCT USED FOR UNKNOWN INDICATION
  3. DEPAKENE [Suspect]
     Indication: EPILEPSY
     Route: 048
     Dates: start: 20110201, end: 20110301
  4. DEPAKENE [Suspect]
     Route: 048
     Dates: start: 20110401
  5. DEPAKENE [Suspect]
     Dosage: EXTENDED RELEASE
     Route: 048

REACTIONS (2)
  - PETIT MAL EPILEPSY [None]
  - DIZZINESS [None]
